FAERS Safety Report 6153746-1 (Version None)
Quarter: 2009Q2

REPORT INFORMATION
  Report Type: 
  Country: None (occurrence: None)
  Receive Date: 20090410
  Receipt Date: 20090330
  Transmission Date: 20091009
  Serious: Yes (Life-Threatening, Other)
  Sender: FDA-Public Use
  Company Number: GXKR2009US04021

PATIENT
  Age: 40 Year
  Sex: Male

DRUGS (8)
  1. RIBAVIRIN [Suspect]
     Indication: HEPATITIS C
     Dosage: 200-1200 MG/DAY
  2. CYCLOSPORINE [Suspect]
     Indication: IMMUNOSUPPRESSION
  3. PREDNISONE [Suspect]
     Indication: IMMUNOSUPPRESSION
  4. SIROLIMUS (SIROLIMUS) [Suspect]
     Indication: IMMUNOSUPPRESSION
  5. INTRON A [Suspect]
     Indication: HEPATITIS C
     Dosage: 1.5-3.0 MILLION UNITS, THREE TIMES A WEEK
  6. GLYBURIDE [Concomitant]
  7. FILGRASTIM (FILGRASTIM) [Concomitant]
  8. ERYTHROPOIETIN (ERYTHROPOIETIN) [Concomitant]

REACTIONS (10)
  - DIABETES MELLITUS [None]
  - DIPLOPIA [None]
  - HAEMATOCRIT DECREASED [None]
  - HAEMOLYTIC ANAEMIA [None]
  - HEADACHE [None]
  - LIVER TRANSPLANT REJECTION [None]
  - NEUTROPENIA [None]
  - ORBITAL APEX SYNDROME [None]
  - RENAL FAILURE [None]
  - ZYGOMYCOSIS [None]
